FAERS Safety Report 6449116-9 (Version None)
Quarter: 2009Q4

REPORT INFORMATION
  Report Type: 
  Country: None (occurrence: None)
  Receive Date: 20091120
  Receipt Date: 20091111
  Transmission Date: 20100525
  Serious: Yes (Hospitalization, Disabling)
  Sender: FDA-Public Use
  Company Number: US-JNJFOC-20091103983

PATIENT
  Sex: Female

DRUGS (3)
  1. SUDAFED 24 HOUR [Suspect]
     Indication: NASOPHARYNGITIS
     Dosage: 5 DAYS
  2. HIGH BLOOD PRESSURE MEDICATION NOS [Concomitant]
     Indication: HYPERTENSION
  3. MANY OTHER UNSPECIFIED MEDICATIONS [Concomitant]

REACTIONS (5)
  - ACTIVITIES OF DAILY LIVING IMPAIRED [None]
  - CEREBROVASCULAR ACCIDENT [None]
  - DRUG PRESCRIBING ERROR [None]
  - INCONTINENCE [None]
  - WHEELCHAIR USER [None]
